FAERS Safety Report 8516662-3 (Version None)
Quarter: 2012Q3

REPORT INFORMATION
  Report Type: 
  Country: None (occurrence: None)
  Receive Date: 20120718
  Receipt Date: 20120711
  Transmission Date: 20120928
  Serious: Yes (Other)
  Sender: FDA-Public Use
  Company Number: DE-JNJFOC-20120308904

PATIENT
  Sex: Female

DRUGS (4)
  1. MINOXIDIL [Suspect]
     Route: 061
  2. MINOXIDIL [Suspect]
     Indication: ANDROGENETIC ALOPECIA
     Route: 061
     Dates: start: 20120306, end: 20120323
  3. BISOPROLOL FUMARATE [Concomitant]
     Indication: HYPERTENSION
     Route: 065
  4. BISOPROLOL FUMARATE [Concomitant]
     Indication: CARDIAC FAILURE
     Route: 065

REACTIONS (5)
  - WRONG DRUG ADMINISTERED [None]
  - HEADACHE [None]
  - HYPOTENSION [None]
  - VERTIGO [None]
  - NAUSEA [None]
